FAERS Safety Report 19056877 (Version 1)
Quarter: 2021Q1

REPORT INFORMATION
  Report Type: Spontaneous
  Country: AU (occurrence: AU)
  Receive Date: 20210325
  Receipt Date: 20210325
  Transmission Date: 20210420
  Serious: Yes (Other)
  Sender: FDA-Public Use
  Company Number: AU-PFIZER INC-07H-008-0312967-00

PATIENT
  Age: 15 Year
  Sex: Male
  Weight: 69 kg

DRUGS (3)
  1. PROPOFOL. [Suspect]
     Active Substance: PROPOFOL
     Dosage: UNK
  2. FENTANYL CITRATE. [Suspect]
     Active Substance: FENTANYL CITRATE
     Dosage: UNK
  3. MIDAZOLAM. [Suspect]
     Active Substance: MIDAZOLAM
     Dosage: UNK

REACTIONS (1)
  - Hemiplegic migraine [Recovered/Resolved]
